FAERS Safety Report 18642318 (Version 1)
Quarter: 2020Q4

REPORT INFORMATION
  Report Type: Spontaneous
  Country: GB (occurrence: GB)
  Receive Date: 20201221
  Receipt Date: 20201221
  Transmission Date: 20210114
  Serious: Yes (Life-Threatening)
  Sender: FDA-Public Use
  Company Number: GB-ACCORD-211406

PATIENT
  Age: 49 Year
  Sex: Female
  Weight: 150 kg

DRUGS (16)
  1. RAMIPRIL. [Suspect]
     Active Substance: RAMIPRIL
     Indication: HYPERTENSION
     Route: 048
     Dates: start: 20201116, end: 20201123
  2. PREGABALIN. [Concomitant]
     Active Substance: PREGABALIN
  3. DOXAZOSIN [Concomitant]
     Active Substance: DOXAZOSIN MESYLATE
  4. EURAX [Concomitant]
     Active Substance: CROTAMITON
  5. SERTRALINE [Concomitant]
     Active Substance: SERTRALINE HYDROCHLORIDE
  6. AZITHROMYCIN ANHYDROUS. [Concomitant]
     Active Substance: AZITHROMYCIN ANHYDROUS
  7. ZOPICLONE [Concomitant]
     Active Substance: ZOPICLONE
  8. NORTRIPTYLINE [Concomitant]
     Active Substance: NORTRIPTYLINE
  9. OXYCODONE [Suspect]
     Active Substance: OXYCODONE
     Indication: PAIN
     Dosage: 40 MG TWICE DAILY LONG ACTING AND 20 MG FIVE TIMES DAILY
     Route: 048
     Dates: start: 20160101
  10. SALBUTAMOL [Concomitant]
     Active Substance: ALBUTEROL
  11. BISACODYL. [Concomitant]
     Active Substance: BISACODYL
  12. OMEPRAZOLE. [Concomitant]
     Active Substance: OMEPRAZOLE
  13. CARBOCISTEINE/CARBOCISTEINE LYSINE/CARBOCISTEINE SODIUM [Concomitant]
     Active Substance: CARBOCYSTEINE
  14. NAPROXEN. [Concomitant]
     Active Substance: NAPROXEN
  15. PARACETAMOL [Concomitant]
     Active Substance: ACETAMINOPHEN
  16. FOSTAIR [Concomitant]
     Active Substance: BECLOMETHASONE\FORMOTEROL

REACTIONS (2)
  - Respiratory arrest [Recovering/Resolving]
  - Dehydration [Unknown]

NARRATIVE: CASE EVENT DATE: 20201123
